FAERS Safety Report 4885994-2 (Version None)
Quarter: 2006Q1

REPORT INFORMATION
  Report Type: 
  Country: None (occurrence: None)
  Receive Date: 20060120
  Receipt Date: 20060111
  Transmission Date: 20060701
  Serious: Yes (Hospitalization)
  Sender: FDA-Public Use
  Company Number: US-AMGEN-US165478

PATIENT
  Sex: Male

DRUGS (4)
  1. NEULASTA [Suspect]
     Indication: CHEMOTHERAPY
  2. OXALIPLATIN [Concomitant]
  3. BEVACIZUMAB [Concomitant]
  4. FLUOROURACIL [Concomitant]
     Route: 042

REACTIONS (2)
  - BACK PAIN [None]
  - NON-CARDIAC CHEST PAIN [None]
